FAERS Safety Report 21994395 (Version 1)
Quarter: 2023Q1

REPORT INFORMATION
  Report Type: Spontaneous
  Country: US (occurrence: US)
  Receive Date: 20230215
  Receipt Date: 20230215
  Transmission Date: 20230418
  Serious: Yes (Hospitalization)
  Sender: FDA-Public Use
  Company Number: US-MYLANLABS-2023M1016726

PATIENT
  Age: 18 Year
  Sex: Female

DRUGS (2)
  1. CLONIDINE [Suspect]
     Active Substance: CLONIDINE
     Indication: Insomnia
     Dosage: 0.2 MILLIGRAM, IT WAS SUSPECTED THAT SHE CONSUMED SEVEN TO FIFTEEN PILLS TOTAL
     Route: 065
  2. SERTRALINE [Suspect]
     Active Substance: SERTRALINE HYDROCHLORIDE
     Indication: Product used for unknown indication
     Dosage: UNK
     Route: 065

REACTIONS (8)
  - Overdose [Recovered/Resolved]
  - Tachycardia [Recovered/Resolved]
  - Hypertension [Recovered/Resolved]
  - Hypotension [Recovered/Resolved]
  - Bradycardia [Recovered/Resolved]
  - Encephalopathy [Recovered/Resolved]
  - Paradoxical drug reaction [Recovered/Resolved]
  - Off label use [Unknown]
